FAERS Safety Report 20724757 (Version 1)
Quarter: 2022Q2

REPORT INFORMATION
  Report Type: Spontaneous
  Country: US (occurrence: None)
  Receive Date: 20220418
  Receipt Date: 20220418
  Transmission Date: 20220721
  Serious: Yes (Other)
  Sender: FDA-Public Use
  Company Number: None

PATIENT
  Age: 61 Year
  Sex: Female

DRUGS (1)
  1. CAPECITABINE [Suspect]
     Active Substance: CAPECITABINE
     Indication: Breast cancer
     Dosage: FREQUENCY : TWICE A DAY;?
     Route: 048
     Dates: start: 202202

REACTIONS (15)
  - Abdominal pain upper [None]
  - Hypophagia [None]
  - Neuropathy peripheral [None]
  - Paraesthesia [None]
  - Pain in extremity [None]
  - Erythema [None]
  - Weight decreased [None]
  - Tongue ulceration [None]
  - Fatigue [None]
  - Hallucination, visual [None]
  - Malaise [None]
  - Diarrhoea [None]
  - Gastrointestinal sounds abnormal [None]
  - Taste disorder [None]
  - Tongue disorder [None]

NARRATIVE: CASE EVENT DATE: 20220405
